FAERS Safety Report 25033654 (Version 2)
Quarter: 2025Q1

REPORT INFORMATION
  Report Type: Spontaneous
  Country: US (occurrence: US)
  Receive Date: 20250303
  Receipt Date: 20250307
  Transmission Date: 20250409
  Serious: Yes (Other)
  Sender: SANOFI AVENTIS
  Company Number: US-SANOFI-02426483

PATIENT
  Age: 64 Year
  Sex: Male

DRUGS (4)
  1. LANTUS SOLOSTAR [Suspect]
     Active Substance: INSULIN GLARGINE
     Indication: Type 1 diabetes mellitus
     Dosage: 16 IU, BID
     Dates: start: 2005
  2. LANTUS SOLOSTAR [Suspect]
     Active Substance: INSULIN GLARGINE
     Dosage: 16 IU, QD
     Dates: start: 2005
  3. LANTUS SOLOSTAR [Suspect]
     Active Substance: INSULIN GLARGINE
     Dosage: 30 IU, QD
     Dates: start: 2005
  4. HUMALOG [Concomitant]
     Active Substance: INSULIN LISPRO

REACTIONS (3)
  - Diabetes mellitus inadequate control [Unknown]
  - Drug ineffective [Unknown]
  - Off label use [Unknown]

NARRATIVE: CASE EVENT DATE: 20050101
